FAERS Safety Report 10221359 (Version 2)
Quarter: 2015Q2

REPORT INFORMATION
  Report Type: Spontaneous
  Country: TW (occurrence: TW)
  Receive Date: 20140606
  Receipt Date: 20150626
  Transmission Date: 20150821
  Serious: Yes (Death, Other)
  Sender: FDA-Public Use
  Company Number: TW-ALEXION PHARMACEUTICALS INC.-A201402187

PATIENT

DRUGS (1)
  1. SOLIRIS [Suspect]
     Active Substance: ECULIZUMAB
     Indication: HAEMOLYTIC URAEMIC SYNDROME
     Dosage: 300 MG, SINGLE
     Route: 042
     Dates: start: 20140516, end: 20140516

REACTIONS (4)
  - Multi-organ failure [Fatal]
  - Patent ductus arteriosus [Fatal]
  - Sepsis [Fatal]
  - Disseminated intravascular coagulation in newborn [Fatal]

NARRATIVE: CASE EVENT DATE: 20140522
